FAERS Safety Report 15913545 (Version 1)
Quarter: 2019Q1

REPORT INFORMATION
  Report Type: Spontaneous
  Country: US (occurrence: US)
  Receive Date: 20190204
  Receipt Date: 20190204
  Transmission Date: 20190417
  Serious: No
  Sender: FDA-Public Use
  Company Number: US-ABBVIE-18K-163-2417671-00

PATIENT
  Sex: Male

DRUGS (4)
  1. SIMPONI ARIA [Suspect]
     Active Substance: GOLIMUMAB
     Indication: RHEUMATOID ARTHRITIS
     Route: 065
     Dates: start: 201806
  2. LEFLUNOMIDE. [Suspect]
     Active Substance: LEFLUNOMIDE
     Indication: RHEUMATOID ARTHRITIS
     Route: 065
     Dates: start: 201608, end: 201712
  3. HUMIRA [Suspect]
     Active Substance: ADALIMUMAB
     Indication: RHEUMATOID ARTHRITIS
     Route: 058
     Dates: start: 201510, end: 201602
  4. ENBREL [Suspect]
     Active Substance: ETANERCEPT
     Indication: RHEUMATOID ARTHRITIS
     Route: 065
     Dates: start: 201509, end: 201510

REACTIONS (3)
  - Drug ineffective [Unknown]
  - Injection site reaction [Unknown]
  - Drug effect incomplete [Unknown]

NARRATIVE: CASE EVENT DATE: 2015
